FAERS Safety Report 14326984 (Version 1)
Quarter: 2017Q4

REPORT INFORMATION
  Report Type: Spontaneous
  Country: DE (occurrence: DE)
  Receive Date: 20171227
  Receipt Date: 20171227
  Transmission Date: 20180321
  Serious: Yes (Life-Threatening, Hospitalization)
  Sender: FDA-Public Use
  Company Number: DE-WEST-WARD PHARMACEUTICALS CORP.-DE-H14001-17-05115

PATIENT
  Age: 72 Year
  Sex: Female
  Weight: 71 kg

DRUGS (6)
  1. IDARUBICIN HYDROCHLORIDE. [Suspect]
     Active Substance: IDARUBICIN HYDROCHLORIDE
     Indication: ACUTE MYELOID LEUKAEMIA
     Dosage: 17 MG, 1X/DAY
     Route: 065
     Dates: start: 20160128, end: 20160130
  2. GEMTUZUMAB OZOGAMICIN [Suspect]
     Active Substance: GEMTUZUMAB OZOGAMICIN
     Indication: ACUTE MYELOID LEUKAEMIA
     Dosage: 5.4 MG, 1X/DAY
     Route: 065
     Dates: start: 20160201, end: 20170201
  3. ATRA [Suspect]
     Active Substance: TRETINOIN
     Indication: ACUTE MYELOID LEUKAEMIA
     Dosage: 77 MG, 1X/DAY
     Route: 065
     Dates: start: 20160102, end: 20160204
  4. ATRA [Suspect]
     Active Substance: TRETINOIN
     Dosage: 26 MG, 1X/DAY
     Route: 065
     Dates: start: 20160205, end: 20160214
  5. CYTARABINE. [Suspect]
     Active Substance: CYTARABINE
     Indication: ACUTE MYELOID LEUKAEMIA
     Dosage: 170 MG, 1X/DAY
     Route: 065
     Dates: start: 20160128, end: 20160201
  6. ETOPOSIDE. [Suspect]
     Active Substance: ETOPOSIDE
     Indication: ACUTE MYELOID LEUKAEMIA
     Dosage: 170 MG, 1X/DAY
     Route: 065
     Dates: start: 20160128, end: 20160130

REACTIONS (1)
  - Pulmonary sepsis [Recovered/Resolved]

NARRATIVE: CASE EVENT DATE: 20160214
